FAERS Safety Report 11179479 (Version 1)
Quarter: 2015Q2

REPORT INFORMATION
  Report Type: Spontaneous
  Country: ES (occurrence: ES)
  Receive Date: 20150611
  Receipt Date: 20150611
  Transmission Date: 20150821
  Serious: Yes (Hospitalization, Other)
  Sender: FDA-Public Use
  Company Number: ES-PAR PHARMACEUTICAL, INC-2015SCPR014027

PATIENT

DRUGS (12)
  1. IBUPROFEN. [Suspect]
     Active Substance: IBUPROFEN
     Indication: FEELING OF BODY TEMPERATURE CHANGE
  2. ALGIDOL                            /07132001/ [Concomitant]
     Indication: FEELING OF BODY TEMPERATURE CHANGE
  3. IBUPROFEN. [Suspect]
     Active Substance: IBUPROFEN
     Indication: MYALGIA
  4. IBUPROFEN. [Suspect]
     Active Substance: IBUPROFEN
     Indication: ARTHRALGIA
  5. ACETAMINOPHEN. [Concomitant]
     Active Substance: ACETAMINOPHEN
     Indication: MYALGIA
  6. ACETAMINOPHEN. [Concomitant]
     Active Substance: ACETAMINOPHEN
     Indication: FEELING OF BODY TEMPERATURE CHANGE
  7. ALGIDOL                            /07132001/ [Concomitant]
     Indication: ARTHRALGIA
  8. ALGIDOL                            /07132001/ [Concomitant]
     Indication: HEADACHE
     Dosage: UNK UNK, UNKNOWN
     Route: 065
  9. IBUPROFEN. [Suspect]
     Active Substance: IBUPROFEN
     Indication: HEADACHE
     Dosage: TOTAL TAKE 1200 MG, UNKNOWN
     Route: 065
  10. ALGIDOL                            /07132001/ [Concomitant]
     Indication: MYALGIA
  11. ACETAMINOPHEN. [Concomitant]
     Active Substance: ACETAMINOPHEN
     Indication: HEADACHE
     Dosage: 1 DF, UNKNOWN
     Route: 065
  12. ACETAMINOPHEN. [Concomitant]
     Active Substance: ACETAMINOPHEN
     Indication: ARTHRALGIA

REACTIONS (7)
  - Hepatic encephalopathy [Recovered/Resolved]
  - Pleural effusion [Recovered/Resolved]
  - Metabolic acidosis [Recovered/Resolved]
  - Drug reaction with eosinophilia and systemic symptoms [Recovered/Resolved]
  - Respiratory failure [Recovered/Resolved]
  - Acute hepatic failure [Recovered/Resolved]
  - Hepatomegaly [Recovered/Resolved]
